FAERS Safety Report 4346433-3 (Version None)
Quarter: 2004Q1

REPORT INFORMATION
  Report Type: 
  Country: None (occurrence: None)
  Receive Date: 20040325
  Receipt Date: 20040112
  Transmission Date: 20041129
  Serious: No
  Sender: FDA-Public Use
  Company Number: USA040156367

PATIENT
  Age: 82 Year
  Sex: Female

DRUGS (4)
  1. FORTEO [Suspect]
     Dates: start: 20031222
  2. DARVOCET-N 100 [Concomitant]
  3. TYLOX [Concomitant]
  4. ACTONEL [Concomitant]

REACTIONS (2)
  - BACK PAIN [None]
  - PAIN [None]
